FAERS Safety Report 7288852-1 (Version None)
Quarter: 2011Q1

REPORT INFORMATION
  Report Type: 
  Country: None (occurrence: None)
  Receive Date: 20110211
  Receipt Date: 20110210
  Transmission Date: 20110831
  Serious: Yes (Death, Hospitalization)
  Sender: FDA-Public Use
  Company Number: US-ASTRAZENECA-2011SE07993

PATIENT
  Sex: Male

DRUGS (27)
  1. SEROQUEL [Suspect]
     Route: 048
     Dates: start: 20080101
  2. SEROQUEL [Suspect]
     Route: 048
     Dates: start: 20080101
  3. SEROQUEL [Suspect]
     Route: 048
     Dates: start: 20080101
  4. SEROQUEL [Suspect]
     Dosage: ADDITIONAL 120 TO 200 MG
     Route: 048
     Dates: start: 20090105
  5. COGENTIN [Concomitant]
  6. RITALIN [Concomitant]
  7. SEROQUEL [Suspect]
     Indication: ATTENTION DEFICIT/HYPERACTIVITY DISORDER
     Route: 048
     Dates: start: 20071031
  8. SEROQUEL [Suspect]
     Route: 048
     Dates: start: 20080701
  9. DEPAKOTE ER [Concomitant]
  10. SEROQUEL [Suspect]
     Indication: OBSESSIVE-COMPULSIVE DISORDER
     Route: 048
     Dates: start: 20071031
  11. SEROQUEL [Suspect]
     Dosage: ADDITIONAL 120 TO 200 MG
     Route: 048
     Dates: start: 20090105
  12. LITHIUM CARBONATE ER [Concomitant]
  13. SEROQUEL [Suspect]
     Route: 048
     Dates: start: 20080701
  14. SEROQUEL [Suspect]
     Route: 048
     Dates: start: 20080701
  15. STATTERA [Concomitant]
  16. SEROQUEL [Suspect]
     Indication: ANGER
     Route: 048
     Dates: start: 20071031
  17. SEROQUEL [Suspect]
     Route: 048
     Dates: start: 20080701
  18. SEROQUEL [Suspect]
     Dosage: ADDITIONAL 120 TO 200 MG
     Route: 048
     Dates: start: 20090105
  19. TRILEPTAL [Concomitant]
  20. CONCERTA [Concomitant]
  21. SEROQUEL [Suspect]
     Indication: TOURETTE'S DISORDER
     Route: 048
     Dates: start: 20071031
  22. PAROXETINE HCL [Concomitant]
  23. RISPERDAL [Concomitant]
  24. LUVOX CR [Concomitant]
  25. CLONIDINE [Concomitant]
  26. SEROQUEL [Suspect]
     Route: 048
     Dates: start: 20080101
  27. SEROQUEL [Suspect]
     Dosage: ADDITIONAL 120 TO 200 MG
     Route: 048
     Dates: start: 20090105

REACTIONS (6)
  - SEPSIS [None]
  - NEUROLEPTIC MALIGNANT SYNDROME [None]
  - MENINGITIS [None]
  - CARDIAC ARREST [None]
  - RESPIRATORY DISTRESS [None]
  - HYPOXIC-ISCHAEMIC ENCEPHALOPATHY [None]
